FAERS Safety Report 9848849 (Version 1)
Quarter: 2014Q1

REPORT INFORMATION
  Report Type: Spontaneous
  Country: US (occurrence: None)
  Receive Date: 20140127
  Receipt Date: 20140127
  Transmission Date: 20141002
  Serious: Yes (Life-Threatening)
  Sender: FDA-Public Use
  Company Number: None

PATIENT
  Age: 40 Year
  Sex: Female

DRUGS (1)
  1. AZITHROMYCIN [Suspect]
     Indication: UPPER RESPIRATORY TRACT INFECTION
     Dosage: 2 TODAY THEN 1 EACH DAY ONCE DAILY TAKEN BY MOUTH
     Route: 048
     Dates: start: 20140124, end: 20140124

REACTIONS (6)
  - Palpitations [None]
  - Dyspnoea [None]
  - Nausea [None]
  - Dizziness [None]
  - Headache [None]
  - Dyspnoea [None]
